FAERS Safety Report 23331407 (Version 1)
Quarter: 2023Q4

REPORT INFORMATION
  Report Type: Spontaneous
  Country: US (occurrence: US)
  Receive Date: 20231222
  Receipt Date: 20231222
  Transmission Date: 20240109
  Serious: Yes (Other)
  Sender: FDA-Public Use
  Company Number: US-BRISTOL-MYERS SQUIBB COMPANY-2023-184658

PATIENT
  Age: 62 Year
  Sex: Male

DRUGS (2)
  1. POMALYST [Suspect]
     Active Substance: POMALIDOMIDE
     Indication: Plasma cell myeloma refractory
  2. POMALYST [Suspect]
     Active Substance: POMALIDOMIDE
     Dosage: FREQUENCY: QD FOR 21 DAYS THEN 7 DAYS OFF
     Route: 048

REACTIONS (7)
  - Tremor [Unknown]
  - Muscular weakness [Unknown]
  - Dyspnoea [Unknown]
  - Oral discomfort [Unknown]
  - Tinnitus [Unknown]
  - Muscle spasms [Unknown]
  - Cardiac flutter [Unknown]
